FAERS Safety Report 7810991-4 (Version None)
Quarter: 2011Q4

REPORT INFORMATION
  Report Type: 
  Country: None (occurrence: None)
  Receive Date: 20111013
  Receipt Date: 20111005
  Transmission Date: 20120403
  Serious: Yes (Other)
  Sender: FDA-Public Use
  Company Number: US-UCBSA-039229

PATIENT
  Age: 85 Year
  Sex: Male

DRUGS (7)
  1. ZONISAMIDE [Concomitant]
     Route: 048
  2. TEGRETOL [Concomitant]
     Indication: CONVULSION
     Route: 048
  3. FUROSEMIDE [Concomitant]
  4. VIMPAT [Suspect]
     Indication: EPILEPSY
     Route: 048
     Dates: start: 20110601, end: 20110727
  5. METOPROLOL TARTRATE [Concomitant]
  6. VIMPAT [Suspect]
     Indication: CONVULSION
     Route: 048
     Dates: start: 20110601, end: 20110727
  7. TEGRETOL [Concomitant]
     Route: 048

REACTIONS (4)
  - DYSARTHRIA [None]
  - STEVENS-JOHNSON SYNDROME [None]
  - HEADACHE [None]
  - HYPOKINESIA [None]
